FAERS Safety Report 20976228 (Version 1)
Quarter: 2022Q2

REPORT INFORMATION
  Report Type: Report from Study
  Country: US (occurrence: US)
  Receive Date: 20220617
  Receipt Date: 20220617
  Transmission Date: 20220720
  Serious: Yes (Other)
  Sender: FDA-Public Use
  Company Number: US-PFIZER INC-202101753502

PATIENT
  Age: 63 Year
  Sex: Female

DRUGS (5)
  1. IBRANCE [Suspect]
     Active Substance: PALBOCICLIB
     Indication: Breast cancer female
     Dosage: 125 MG, CYCLIC (CYCLES OF 21 DAYS ON AND 7 DAYS OFF)
     Route: 048
     Dates: start: 20211109, end: 202201
  2. IBRANCE [Suspect]
     Active Substance: PALBOCICLIB
     Dosage: 100 MG, CYCLIC (CYCLES OF 21 DAYS ON AND 7 DAYS OFF)
     Route: 048
     Dates: start: 20220207
  3. IBRANCE [Suspect]
     Active Substance: PALBOCICLIB
     Dosage: 75 MG, CYCLIC (75 MG DAILY FOR 21 DAYS ON AND 7 DAYS OFF)
     Route: 048
     Dates: start: 20220410, end: 20220513
  4. FASLODEX [Suspect]
     Active Substance: FULVESTRANT
     Dosage: UNK
     Dates: start: 2022
  5. ANASTROZOLE [Concomitant]
     Active Substance: ANASTROZOLE
     Dosage: UNK

REACTIONS (16)
  - Uveitis [Recovering/Resolving]
  - Pruritus [Recovered/Resolved]
  - Glossodynia [Recovered/Resolved]
  - Fatigue [Not Recovered/Not Resolved]
  - White blood cell count decreased [Recovering/Resolving]
  - Neutrophil count decreased [Unknown]
  - Diarrhoea [Unknown]
  - Alopecia [Not Recovered/Not Resolved]
  - Arthralgia [Not Recovered/Not Resolved]
  - Poor quality sleep [Unknown]
  - Musculoskeletal chest pain [Unknown]
  - Memory impairment [Not Recovered/Not Resolved]
  - Cough [Unknown]
  - Full blood count abnormal [Unknown]
  - Pneumonitis [Unknown]
  - Emphysema [Unknown]

NARRATIVE: CASE EVENT DATE: 20210101
